FAERS Safety Report 23997247 (Version 1)
Quarter: 2024Q2

REPORT INFORMATION
  Report Type: Spontaneous
  Country: FR (occurrence: FR)
  Receive Date: 20240621
  Receipt Date: 20240621
  Transmission Date: 20240717
  Serious: Yes (Other)
  Sender: FDA-Public Use
  Company Number: FR-GALDERMA-FR2024010044

PATIENT

DRUGS (1)
  1. MIRVASO [Suspect]
     Active Substance: BRIMONIDINE TARTRATE
     Indication: Product used for unknown indication
     Dosage: 1 DOSAGE FORM, TOPICAL ROUTE
     Route: 061

REACTIONS (5)
  - Sjogren^s syndrome [Unknown]
  - Condition aggravated [Unknown]
  - Skin burning sensation [Unknown]
  - Facial pain [Unknown]
  - Erythema [Unknown]
